FAERS Safety Report 11095386 (Version 1)
Quarter: 2015Q2

REPORT INFORMATION
  Report Type: Other
  Country: DE (occurrence: DE)
  Receive Date: 20150506
  Receipt Date: 20150506
  Transmission Date: 20150821
  Serious: Yes (Hospitalization)
  Sender: FDA-Public Use
  Company Number: DE-MYLANLABS-2015M1013696

PATIENT

DRUGS (16)
  1. BISOPROLOL [Suspect]
     Active Substance: BISOPROLOL
     Dosage: 5 MG, QD
  2. ASPIRIN. [Interacting]
     Active Substance: ASPIRIN
     Dosage: 80 MG, QD
  3. PLAVIX [Concomitant]
     Active Substance: CLOPIDOGREL BISULFATE
     Dosage: `75 MG, QD
  4. NOVORAPID [Concomitant]
     Active Substance: INSULIN ASPART
     Dosage: 24 IU, QD
  5. SEROQUEL [Interacting]
     Active Substance: QUETIAPINE FUMARATE
     Dosage: 50 MG, QD
     Dates: start: 20081110, end: 20081110
  6. LACTULOSE. [Concomitant]
     Active Substance: LACTULOSE
     Dosage: 1 DF, QD
  7. TOREM [Interacting]
     Active Substance: TORSEMIDE
     Dosage: 20 MG, QD
  8. ATACAND [Interacting]
     Active Substance: CANDESARTAN CILEXETIL
     Dosage: 8 MG, QD
  9. IS 5 MONO [Interacting]
     Active Substance: ISOSORBIDE MONONITRATE
     Dosage: 20 MG, QD
  10. CARBIMAZOL [Concomitant]
     Dosage: 5 MG, UNK
  11. MAGNESIOCARD [Concomitant]
     Active Substance: MAGNESIUM ASPARTATE HYDROCHLORIDE
     Dosage: 1 DF, QD
  12. KALINOR [Concomitant]
     Active Substance: POTASSIUM CITRATE
     Dosage: 1 DF, QD
  13. RISPERDAL [Concomitant]
     Active Substance: RISPERIDONE
     Dosage: 1 MG, QD
     Dates: start: 20081104, end: 20081109
  14. AMLODIPIN [Interacting]
     Active Substance: AMLODIPINE BESYLATE
     Dosage: 5 MG, QD
  15. TRAMAL [Interacting]
     Active Substance: TRAMADOL
     Dosage: 100 MG, QD
  16. LEVEMIR [Concomitant]
     Active Substance: INSULIN DETEMIR
     Dosage: 12 IU, QD

REACTIONS (3)
  - Hypotension [Recovered/Resolved]
  - Drug interaction [Unknown]
  - Dizziness [Recovered/Resolved]

NARRATIVE: CASE EVENT DATE: 20081111
